FAERS Safety Report 6745407-2 (Version None)
Quarter: 2010Q2

REPORT INFORMATION
  Report Type: 
  Country: None (occurrence: None)
  Receive Date: 20100528
  Receipt Date: 20100520
  Transmission Date: 20101027
  Serious: Yes (Death, Other)
  Sender: FDA-Public Use
  Company Number: JP-BAYER-201012466BYL

PATIENT
  Age: 61 Year
  Sex: Male
  Weight: 66 kg

DRUGS (3)
  1. NEXAVAR [Suspect]
     Indication: HEPATIC NEOPLASM MALIGNANT
     Dosage: TOTAL DAILY DOSE: 800 MG  UNIT DOSE: 200 MG
     Route: 048
     Dates: start: 20090702, end: 20090706
  2. KADIAN [Concomitant]
     Dosage: SINCE BEFORE ADMINISTRATION
     Route: 048
  3. ALOSENN [Concomitant]
     Dosage: SINCE BEFORE ADMINISTRATION
     Route: 048

REACTIONS (3)
  - DIZZINESS [None]
  - HEPATIC NEOPLASM MALIGNANT [None]
  - TRANSIENT ISCHAEMIC ATTACK [None]
